FAERS Safety Report 7269433-2 (Version None)
Quarter: 2011Q1

REPORT INFORMATION
  Report Type: 
  Country: None (occurrence: None)
  Receive Date: 20110202
  Receipt Date: 20110128
  Transmission Date: 20110831
  Serious: No
  Sender: FDA-Public Use
  Company Number: US-PFIZER INC-2011020892

PATIENT
  Sex: Female
  Weight: 63.5 kg

DRUGS (2)
  1. PREMPRO [Suspect]
     Indication: MENOPAUSAL SYMPTOMS
     Dosage: 0.3/1.5 MG, DAILY
     Route: 048
     Dates: start: 20110120
  2. MULTIVITAMIN [Concomitant]

REACTIONS (1)
  - PALPITATIONS [None]
